FAERS Safety Report 13426941 (Version 2)
Quarter: 2017Q2

REPORT INFORMATION
  Report Type: Spontaneous
  Country: US (occurrence: US)
  Receive Date: 20170411
  Receipt Date: 20170517
  Transmission Date: 20170830
  Serious: Yes (Life-Threatening, Other)
  Sender: FDA-Public Use
  Company Number: US-AUROBINDO-AUR-APL-2017-32171

PATIENT
  Age: 66 Year
  Sex: Female

DRUGS (1)
  1. METOPROLOL. [Suspect]
     Active Substance: METOPROLOL
     Indication: ATRIAL FIBRILLATION
     Route: 065

REACTIONS (6)
  - Hypersensitivity [Recovered/Resolved]
  - Psoriasis [Recovering/Resolving]
  - Skin exfoliation [Recovered/Resolved]
  - Koebner phenomenon [Recovering/Resolving]
  - Dermatitis exfoliative [Recovering/Resolving]
  - Rash [Recovered/Resolved]
